FAERS Safety Report 12343448 (Version 5)
Quarter: 2019Q2

REPORT INFORMATION
  Report Type: Spontaneous
  Country: US (occurrence: US)
  Receive Date: 20160506
  Receipt Date: 20190610
  Transmission Date: 20190711
  Serious: No
  Sender: FDA-Public Use
  Company Number: US-PFIZER INC-2016202998

PATIENT
  Age: 57 Year
  Sex: Male
  Weight: 118 kg

DRUGS (5)
  1. RAPAMUNE [Suspect]
     Active Substance: SIROLIMUS
     Indication: LIVER TRANSPLANT
     Dosage: 2 MG, UNK (HE WAS TAKING 2, 1MG TABLETS)
  2. RAPAMUNE [Suspect]
     Active Substance: SIROLIMUS
     Indication: RENAL TRANSPLANT
     Dosage: 3 MG, DAILY (THREE 1 MG TABLETS A DAY)
     Route: 048
     Dates: start: 2015
  3. RAPAMUNE [Suspect]
     Active Substance: SIROLIMUS
     Dosage: 4 MG, DAILY (HE KEPT TAKING THE 2 TABLETS DAILY. THEY WERE 2MG EACH)
  4. MYFORTIC [Concomitant]
     Active Substance: MYCOPHENOLATE SODIUM
     Indication: PROPHYLAXIS AGAINST TRANSPLANT REJECTION
     Dosage: 720 MG, 2X/DAY (FOUR 180 MG TABLETS, TWICE A DAY)
     Dates: start: 201306
  5. RAPAMUNE [Suspect]
     Active Substance: SIROLIMUS
     Dosage: 2 MG, UNK (TAKE 1 N 1MG TABLET (2 MG) ON MWF AND 2 X 1MG TABLETS 1MG TABLETS(2 MG) ON T, TH, SAT,SUN

REACTIONS (7)
  - Hernia [Not Recovered/Not Resolved]
  - Nausea [Recovered/Resolved]
  - Swelling [Not Recovered/Not Resolved]
  - Incorrect dose administered [Unknown]
  - Feeling abnormal [Not Recovered/Not Resolved]
  - Laboratory test abnormal [Unknown]
  - Abdominal pain [Not Recovered/Not Resolved]

NARRATIVE: CASE EVENT DATE: 20160406
